FAERS Safety Report 4478521-5 (Version None)
Quarter: 2004Q4

REPORT INFORMATION
  Report Type: 
  Country: None (occurrence: None)
  Receive Date: 20041018
  Receipt Date: 20041018
  Transmission Date: 20050328
  Serious: No
  Sender: FDA-Public Use
  Company Number: None

PATIENT
  Age: 70 Year
  Sex: Female
  Weight: 49.4421 kg

DRUGS (6)
  1. MOBIC [Suspect]
     Indication: LOCALISED OSTEOARTHRITIS
     Dosage: 15 MG PO QD
     Route: 048
     Dates: start: 20040719, end: 20041007
  2. KLONOPIN [Concomitant]
  3. BACLOFEN [Concomitant]
  4. EFFEXOR XR [Concomitant]
  5. PERCOCET [Concomitant]
  6. PREVACID [Concomitant]

REACTIONS (2)
  - GASTRIC ULCER [None]
  - NAUSEA [None]
